FAERS Safety Report 18384080 (Version 5)
Quarter: 2021Q2

REPORT INFORMATION
  Report Type: Spontaneous
  Country: US (occurrence: US)
  Receive Date: 20201014
  Receipt Date: 20210505
  Transmission Date: 20210717
  Serious: Yes (Hospitalization, Other)
  Sender: FDA-Public Use
  Company Number: US-ASTRAZENECA-2020SF31084

PATIENT
  Sex: Female
  Weight: 73.9 kg

DRUGS (3)
  1. PULMICORT FLEXHALER [Suspect]
     Active Substance: BUDESONIDE
     Indication: ASTHMA
     Dosage: 180 MCG, 2 PUFFS IN THE MORNING
     Route: 055
  2. SYMBICORT [Suspect]
     Active Substance: BUDESONIDE\FORMOTEROL FUMARATE DIHYDRATE
     Dosage: AS REQUIRED AS REQUIRED
     Route: 055
  3. ALBUTEROL. [Concomitant]
     Active Substance: ALBUTEROL
     Dosage: IF NEEDED.

REACTIONS (11)
  - Atypical pneumonia [Unknown]
  - Off label use [Unknown]
  - Bronchitis [Unknown]
  - Neurological symptom [Unknown]
  - Device issue [Unknown]
  - Asthma [Unknown]
  - Post-traumatic stress disorder [Unknown]
  - Body height decreased [Unknown]
  - Incorrect dose administered by device [Unknown]
  - Fall [Unknown]
  - Wrong technique in device usage process [Unknown]
